FAERS Safety Report 4759108-3 (Version None)
Quarter: 2005Q3

REPORT INFORMATION
  Report Type: 
  Country: None (occurrence: None)
  Receive Date: 20050831
  Receipt Date: 20050822
  Transmission Date: 20060218
  Serious: Yes (Disabling, Other)
  Sender: FDA-Public Use
  Company Number: 27259

PATIENT
  Age: 70 Year
  Sex: Male

DRUGS (1)
  1. ALDARA [Suspect]
     Indication: CHEILITIS
     Dosage: (3 IN 1 WEEK (S)) TOPICAL
     Route: 061
     Dates: start: 20040202

REACTIONS (1)
  - LICHEN PLANUS [None]
